FAERS Safety Report 4396969-4 (Version None)
Quarter: 2004Q3

REPORT INFORMATION
  Report Type: 
  Country: None (occurrence: None)
  Receive Date: 20040713
  Receipt Date: 20040713
  Transmission Date: 20050211
  Serious: Yes (Hospitalization, Other)
  Sender: FDA-Public Use
  Company Number: None

PATIENT
  Age: 29 Month
  Sex: Female
  Weight: 14.9687 kg

DRUGS (1)
  1. PHENOBARBITAL ELIXIR 20MG / 5ML QUALITEST [Suspect]
     Indication: CONVULSION
     Dosage: 8.5ML 2X DAILY ORAL
     Route: 048
     Dates: start: 20040402, end: 20040412

REACTIONS (2)
  - CONJUNCTIVITIS [None]
  - STEVENS-JOHNSON SYNDROME [None]
